FAERS Safety Report 4551139-1 (Version None)
Quarter: 2005Q1

REPORT INFORMATION
  Report Type: 
  Country: None (occurrence: None)
  Receive Date: 20050111
  Receipt Date: 20050111
  Transmission Date: 20050727
  Serious: Yes (Hospitalization)
  Sender: FDA-Public Use
  Company Number: None

PATIENT
  Sex: Female
  Weight: 63.5036 kg

DRUGS (6)
  1. CETUXIMAB   100MG/50ML  IMCLONE [Suspect]
     Indication: COLORECTAL CANCER METASTATIC
     Dosage: 400MG/M2  WEEKLY INTRAVENOUS
     Route: 042
     Dates: start: 20041116, end: 20041116
  2. OXALIPLATIN   SANOFI-SYNTHELABO [Suspect]
     Indication: COLORECTAL CANCER METASTATIC
     Dosage: 85 MG/M2  Q2 WEEKS  INTRAVENOUS
     Route: 042
     Dates: start: 20041116, end: 20041116
  3. LEUCOVORIN [Concomitant]
  4. FLUOROURACIL [Concomitant]
  5. LOVENOX [Concomitant]
  6. COUMADIN [Concomitant]

REACTIONS (5)
  - ABDOMINAL PAIN LOWER [None]
  - AMNESIA [None]
  - DELIRIUM [None]
  - FATIGUE [None]
  - HAEMATEMESIS [None]
